FAERS Safety Report 8041774-0 (Version None)
Quarter: 2011Q4

REPORT INFORMATION
  Report Type: 
  Country: None (occurrence: None)
  Receive Date: 20111202
  Receipt Date: 20110420
  Transmission Date: 20120403
  Serious: Yes (Hospitalization, Disabling)
  Sender: FDA-Public Use
  Company Number: 2011SP017862

PATIENT
  Age: 31 Year
  Sex: Female
  Weight: 50.3493 kg

DRUGS (2)
  1. NUVARING [Suspect]
     Indication: CONTRACEPTION
     Dates: start: 20081001, end: 20090601
  2. NUVARING [Suspect]
     Indication: MENSTRUAL CYCLE MANAGEMENT
     Dates: start: 20081001, end: 20090601

REACTIONS (4)
  - UNINTENDED PREGNANCY [None]
  - PULMONARY EMBOLISM [None]
  - EMOTIONAL DISORDER [None]
  - MENTAL DISORDER [None]
